FAERS Safety Report 13497133 (Version 3)
Quarter: 2017Q2

REPORT INFORMATION
  Report Type: Spontaneous
  Country: FR (occurrence: FR)
  Receive Date: 20170428
  Receipt Date: 20170509
  Transmission Date: 20170830
  Serious: Yes (Other)
  Sender: FDA-Public Use
  Company Number: FR-PFIZER INC-2017178914

PATIENT
  Age: 54 Year
  Sex: Male

DRUGS (12)
  1. CEFTAZIDIME. [Suspect]
     Active Substance: CEFTAZIDIME
     Indication: ABDOMINAL ABSCESS
     Dosage: UNK (FIVE MONTHS PRIOR TO HIS ADMISSION IN JULY 2012)
  2. NITROFURANTOIN. [Suspect]
     Active Substance: NITROFURANTOIN
     Indication: URINARY TRACT INFECTION
     Dosage: UNK (MULTIPLE COURSES)
  3. METRONIDAZOLE. [Suspect]
     Active Substance: METRONIDAZOLE
     Indication: ABDOMINAL ABSCESS
     Dosage: UNK (FIVE MONTHS PRIOR TO HIS ADMISSION IN JULY 2012)
  4. METRONIDAZOLE. [Suspect]
     Active Substance: METRONIDAZOLE
     Indication: PELVIC VENOUS THROMBOSIS
  5. AMOXICILLIN W/CLAVULANIC ACID [Suspect]
     Active Substance: AMOXICILLIN\CLAVULANIC ACID
     Indication: URINARY TRACT INFECTION
     Dosage: UNK (MULTIPLE COURSES)
  6. AMIKACIN [Suspect]
     Active Substance: AMIKACIN
     Indication: ABDOMINAL ABSCESS
     Dosage: UNK (FIVE MONTHS PRIOR TO HIS ADMISSION IN JULY 2012)
  7. CEFTAZIDIME. [Suspect]
     Active Substance: CEFTAZIDIME
     Indication: PELVIC VENOUS THROMBOSIS
  8. PIPERACILLIN/TAZOBACTAM [Suspect]
     Active Substance: PIPERACILLIN SODIUM\TAZOBACTAM SODIUM
     Indication: ABDOMINAL ABSCESS
     Dosage: UNK (FIVE MONTHS PRIOR TO HIS ADMISSION IN JULY 2012)
  9. AMIKACIN [Suspect]
     Active Substance: AMIKACIN
     Indication: PELVIC VENOUS THROMBOSIS
  10. IMIPENEM [Concomitant]
     Active Substance: IMIPENEM
     Indication: SEPSIS
     Dosage: UNK
  11. CEFIXIME. [Suspect]
     Active Substance: CEFIXIME
     Indication: URINARY TRACT INFECTION
     Dosage: UNK (MULTIPLE COURSES)
  12. PIPERACILLIN/TAZOBACTAM [Suspect]
     Active Substance: PIPERACILLIN SODIUM\TAZOBACTAM SODIUM
     Indication: PELVIC VENOUS THROMBOSIS

REACTIONS (1)
  - Clostridium difficile infection [Recovered/Resolved]
